FAERS Safety Report 11295765 (Version 1)
Quarter: 2015Q3

REPORT INFORMATION
  Report Type: Spontaneous
  Country: US (occurrence: None)
  Receive Date: 20150722
  Receipt Date: 20150722
  Transmission Date: 20151125
  Serious: Yes (Hospitalization)
  Sender: FDA-Public Use
  Company Number: None

PATIENT
  Age: 61 Year
  Sex: Female

DRUGS (10)
  1. CUPROPION [Concomitant]
  2. LISINOPRIL. [Concomitant]
     Active Substance: LISINOPRIL
  3. K+ [Concomitant]
     Active Substance: POTASSIUM CATION
  4. MINOXIDIL. [Concomitant]
     Active Substance: MINOXIDIL
  5. HARVONI [Suspect]
     Active Substance: LEDIPASVIR\SOFOSBUVIR
     Dosage: 1 PILL
     Route: 048
  6. ASA [Concomitant]
     Active Substance: ASPIRIN
  7. ALPRAZOLAM. [Concomitant]
     Active Substance: ALPRAZOLAM
  8. TRADJENTA [Concomitant]
     Active Substance: LINAGLIPTIN
  9. HYDROSODONE [Concomitant]
  10. CLONIDINE. [Concomitant]
     Active Substance: CLONIDINE

REACTIONS (5)
  - Sensation of foreign body [None]
  - Abdominal discomfort [None]
  - Feeding disorder [None]
  - Chest pain [None]
  - Chest discomfort [None]
